FAERS Safety Report 6755011-8 (Version None)
Quarter: 2010Q2

REPORT INFORMATION
  Report Type: 
  Country: None (occurrence: None)
  Receive Date: 20100602
  Receipt Date: 20100519
  Transmission Date: 20101027
  Serious: Yes (Other)
  Sender: FDA-Public Use
  Company Number: 2010AC000456

PATIENT
  Age: 68 Year
  Sex: Male

DRUGS (10)
  1. DIGOXIN [Suspect]
     Dosage: 0.125 MG; QD; PO
     Route: 048
  2. FUROSEMIDE [Concomitant]
  3. BISOPROLOL [Concomitant]
  4. ASPIRIN [Concomitant]
  5. ACIPIMOX [Concomitant]
  6. LANSOPRAZOLE [Concomitant]
  7. AMIODARONE HYDROCHLORIDE [Concomitant]
  8. PERINDOPRIL [Concomitant]
  9. EZETROL [Concomitant]
  10. WARFARIN SODIUM [Concomitant]

REACTIONS (12)
  - ATRIAL FIBRILLATION [None]
  - CARDIAC MURMUR [None]
  - DIZZINESS [None]
  - DYSPNOEA [None]
  - FATIGUE [None]
  - FEELING ABNORMAL [None]
  - INDIFFERENCE [None]
  - LEFT VENTRICULAR DYSFUNCTION [None]
  - OEDEMA [None]
  - PARAESTHESIA [None]
  - VENOUS PRESSURE JUGULAR INCREASED [None]
  - VENTRICULAR TACHYCARDIA [None]
